FAERS Safety Report 15097284 (Version 2)
Quarter: 2018Q3

REPORT INFORMATION
  Report Type: Report from Study
  Country: None (occurrence: GR)
  Receive Date: 20180702
  Receipt Date: 20180731
  Transmission Date: 20181010
  Serious: Yes (Hospitalization, Other)
  Sender: FDA-Public Use
  Company Number: GR-ABBVIE-18K-066-2405344-00

PATIENT
  Sex: Male

DRUGS (4)
  1. CLONOTRIL [Concomitant]
     Active Substance: CLONAZEPAM
     Indication: INSOMNIA
     Route: 048
  2. DUODOPA [Suspect]
     Active Substance: CARBIDOPA\LEVODOPA
     Dosage: CR:6.2ML/H (FROM10:00 TO 24:00); CR:5.2ML/H (FROM 24:00 TO10:00); EXTRA DOSE:3.7ML
     Route: 050
  3. MADOPAR [Concomitant]
     Active Substance: BENSERAZIDE HYDROCHLORIDE\LEVODOPA
     Indication: PARKINSON^S DISEASE
     Route: 048
  4. DUODOPA [Suspect]
     Active Substance: CARBIDOPA\LEVODOPA
     Indication: PARKINSON^S DISEASE
     Dosage: CR:5.0ML/H(FROM 24:00 TO 05:00);CR:5.5ML/H (FROM 09:00 TO 24:00); EXTRA DOSE:3.5ML
     Route: 050
     Dates: start: 20150125

REACTIONS (3)
  - Large intestinal obstruction [Recovered/Resolved]
  - Colorectal cancer [Recovering/Resolving]
  - Metastases to liver [Not Recovered/Not Resolved]

NARRATIVE: CASE EVENT DATE: 2017
